FAERS Safety Report 9568988 (Version 1)
Quarter: 2013Q3

REPORT INFORMATION
  Report Type: Spontaneous
  Country: US (occurrence: US)
  Receive Date: 20130930
  Receipt Date: 20130930
  Transmission Date: 20140515
  Serious: No
  Sender: FDA-Public Use
  Company Number: US-AMGEN-USASP2013059915

PATIENT
  Age: 51 Year
  Sex: Female

DRUGS (2)
  1. ENBREL [Suspect]
     Indication: RHEUMATOID ARTHRITIS
     Dosage: 50 MG, QWK
     Route: 065
     Dates: start: 201304, end: 20130806
  2. REMICADE [Concomitant]
     Dosage: UNK UNK, 4X EVERY TWO WEEKS
     Route: 042
     Dates: start: 20130826

REACTIONS (1)
  - Rheumatoid arthritis [Not Recovered/Not Resolved]
